FAERS Safety Report 9470377 (Version 1)
Quarter: 2013Q3

REPORT INFORMATION
  Report Type: Spontaneous
  Country: US (occurrence: US)
  Receive Date: 20130822
  Receipt Date: 20130822
  Transmission Date: 20140515
  Serious: No
  Sender: FDA-Public Use
  Company Number: US-SANOFI-AVENTIS-2013SA014711

PATIENT
  Age: 87 Year
  Sex: Female

DRUGS (2)
  1. MULTAQ [Suspect]
     Indication: ATRIAL FIBRILLATION
     Route: 048
     Dates: start: 2012
  2. HYZAAR [Concomitant]
     Indication: BLOOD PRESSURE
     Dosage: 50/12.5MG

REACTIONS (2)
  - Palpitations [Recovered/Resolved]
  - Drug ineffective [Recovered/Resolved]
